FAERS Safety Report 8972093 (Version 1)
Quarter: 2012Q4

REPORT INFORMATION
  Report Type: Report from Study
  Country: CA (occurrence: CA)
  Receive Date: 20121218
  Receipt Date: 20121218
  Transmission Date: 20130627
  Serious: Yes (Other)
  Sender: FDA-Public Use
  Company Number: CA-JNJFOC-20121205783

PATIENT
  Sex: Female
  Weight: 65 kg

DRUGS (10)
  1. REMICADE [Suspect]
     Indication: PULMONARY SARCOIDOSIS
     Route: 042
     Dates: start: 20120713, end: 20121207
  2. VALSARTAN + HYDROCHLOROTHIAZIDE [Concomitant]
     Dosage: 160/25 mg
     Route: 065
  3. FELODIPINE [Concomitant]
     Route: 065
  4. PREDNISONE [Concomitant]
     Route: 065
  5. ACETYLCYSTEINE [Concomitant]
     Route: 065
  6. TECTA [Concomitant]
     Route: 065
  7. ZOPICLONE [Concomitant]
     Route: 065
  8. VENTOLIN [Concomitant]
     Route: 065
  9. ELAVIL [Concomitant]
     Route: 065
  10. ADVAIR [Concomitant]
     Route: 065

REACTIONS (2)
  - Surgery [Unknown]
  - Drug ineffective [Not Recovered/Not Resolved]
